FAERS Safety Report 13206698 (Version 1)
Quarter: 2017Q1

REPORT INFORMATION
  Report Type: Spontaneous
  Country: US (occurrence: US)
  Receive Date: 20170208
  Receipt Date: 20170208
  Transmission Date: 20170428
  Serious: No
  Sender: FDA-Public Use
  Company Number: US-AMGEN-USASP2016137417

PATIENT

DRUGS (49)
  1. NEULASTA [Suspect]
     Active Substance: PEGFILGRASTIM
     Indication: PRODUCT USED FOR UNKNOWN INDICATION
     Dosage: UNK
     Route: 065
  2. OMEGA 3 [Concomitant]
     Active Substance: OMEGA-3 FATTY ACIDS
     Indication: PROPHYLAXIS
     Dosage: AT LEAST 3000 MG WITH FOOD, QD
  3. DGL TABLETS [Concomitant]
     Indication: PROPHYLAXIS
  4. DIGESTIVE ENZYMES [Concomitant]
     Active Substance: UNSPECIFIED INGREDIENT
     Indication: GASTROINTESTINAL DISORDER
  5. VITAMIN B [Concomitant]
     Active Substance: VITAMIN B
     Indication: PROGESTERONE RECEPTOR ASSAY NEGATIVE
  6. VITAMIN B [Concomitant]
     Active Substance: VITAMIN B
     Indication: HER-2 POSITIVE BREAST CANCER
  7. MELATONIN [Concomitant]
     Active Substance: MELATONIN
     Indication: INVASIVE DUCTAL BREAST CARCINOMA
     Dosage: 20 MG, QD BEFORE BED
  8. MELATONIN [Concomitant]
     Active Substance: MELATONIN
     Indication: OESTROGEN RECEPTOR ASSAY NEGATIVE
  9. HERCEPTIN [Concomitant]
     Active Substance: TRASTUZUMAB
     Indication: HER-2 POSITIVE BREAST CANCER
  10. DIGESTIVE ENZYMES [Concomitant]
     Active Substance: UNSPECIFIED INGREDIENT
     Indication: IRRITABLE BOWEL SYNDROME
     Dosage: 1 TABLET WITH EACH BIG MEAL
  11. DIGESTIVE ENZYMES [Concomitant]
     Active Substance: UNSPECIFIED INGREDIENT
     Indication: PROPHYLAXIS
  12. L-GLUTAMINE POWDER [Concomitant]
     Indication: IRRITABLE BOWEL SYNDROME
     Dosage: 3 G, 2-3X PER DAY
  13. VITAMIN K2 + D3 [Concomitant]
     Indication: OESTROGEN RECEPTOR ASSAY NEGATIVE
  14. VITAMIN K2 + D3 [Concomitant]
     Indication: HER-2 POSITIVE BREAST CANCER
  15. TAXOTERE [Concomitant]
     Active Substance: DOCETAXEL
     Indication: INVASIVE DUCTAL BREAST CARCINOMA
     Dosage: UNK
     Dates: start: 20160626
  16. TAXOTERE [Concomitant]
     Active Substance: DOCETAXEL
     Indication: HER-2 POSITIVE BREAST CANCER
  17. PERJETA [Concomitant]
     Active Substance: PERTUZUMAB
     Indication: INVASIVE DUCTAL BREAST CARCINOMA
     Dosage: UNK
  18. DGL TABLETS [Concomitant]
     Indication: GASTROINTESTINAL DISORDER
  19. PROBIOTICS [Concomitant]
     Active Substance: PROBIOTICS NOS
     Indication: IRRITABLE BOWEL SYNDROME
     Dosage: 1/2 TEASPOON 2X/DAY
  20. MAGNESIUM [Concomitant]
     Active Substance: MAGNESIUM
     Indication: OESTROGEN RECEPTOR ASSAY NEGATIVE
  21. PARAPLATIN [Concomitant]
     Active Substance: CARBOPLATIN
     Indication: INVASIVE DUCTAL BREAST CARCINOMA
     Dosage: UNK
     Dates: start: 20160626
  22. PARAPLATIN [Concomitant]
     Active Substance: CARBOPLATIN
     Indication: HER-2 POSITIVE BREAST CANCER
  23. PERJETA [Concomitant]
     Active Substance: PERTUZUMAB
     Indication: PROGESTERONE RECEPTOR ASSAY NEGATIVE
  24. COQ10 [Concomitant]
     Active Substance: UBIDECARENONE
     Indication: PROPHYLAXIS
     Dosage: 100 MG, QD
  25. L-GLUTAMINE POWDER [Concomitant]
     Indication: GASTROINTESTINAL DISORDER
  26. VITAMIN K2 + D3 [Concomitant]
     Indication: PROGESTERONE RECEPTOR ASSAY NEGATIVE
  27. MAGNESIUM [Concomitant]
     Active Substance: MAGNESIUM
     Indication: HER-2 POSITIVE BREAST CANCER
  28. HERCEPTIN [Concomitant]
     Active Substance: TRASTUZUMAB
     Indication: INVASIVE DUCTAL BREAST CARCINOMA
     Dosage: UNK
  29. HERCEPTIN [Concomitant]
     Active Substance: TRASTUZUMAB
     Indication: OESTROGEN RECEPTOR ASSAY NEGATIVE
  30. HERCEPTIN [Concomitant]
     Active Substance: TRASTUZUMAB
     Indication: PROGESTERONE RECEPTOR ASSAY NEGATIVE
  31. DGL TABLETS [Concomitant]
     Indication: NAUSEA
  32. MAGNESIUM [Concomitant]
     Active Substance: MAGNESIUM
     Indication: PROGESTERONE RECEPTOR ASSAY NEGATIVE
  33. VITAMIN E [Concomitant]
     Active Substance: .ALPHA.-TOCOPHEROL
     Indication: PROPHYLAXIS
     Dosage: 800 IU, QD
  34. DGL TABLETS [Concomitant]
     Indication: DYSPEPSIA
  35. PROBIOTICS [Concomitant]
     Active Substance: PROBIOTICS NOS
     Indication: PROPHYLAXIS
  36. VITAMIN B [Concomitant]
     Active Substance: VITAMIN B
     Indication: OESTROGEN RECEPTOR ASSAY NEGATIVE
  37. MAGNESIUM [Concomitant]
     Active Substance: MAGNESIUM
     Indication: INVASIVE DUCTAL BREAST CARCINOMA
     Dosage: 200 MG, UNK
  38. PARAPLATIN [Concomitant]
     Active Substance: CARBOPLATIN
     Indication: PROGESTERONE RECEPTOR ASSAY NEGATIVE
  39. TAXOTERE [Concomitant]
     Active Substance: DOCETAXEL
     Indication: PROGESTERONE RECEPTOR ASSAY NEGATIVE
  40. PERJETA [Concomitant]
     Active Substance: PERTUZUMAB
     Indication: OESTROGEN RECEPTOR ASSAY NEGATIVE
  41. L-GLUTAMINE POWDER [Concomitant]
     Indication: PROPHYLAXIS
  42. MELATONIN [Concomitant]
     Active Substance: MELATONIN
     Indication: PROGESTERONE RECEPTOR ASSAY NEGATIVE
  43. PARAPLATIN [Concomitant]
     Active Substance: CARBOPLATIN
     Indication: OESTROGEN RECEPTOR ASSAY NEGATIVE
  44. TAXOTERE [Concomitant]
     Active Substance: DOCETAXEL
     Indication: OESTROGEN RECEPTOR ASSAY NEGATIVE
  45. PERJETA [Concomitant]
     Active Substance: PERTUZUMAB
     Indication: HER-2 POSITIVE BREAST CANCER
  46. DGL TABLETS [Concomitant]
     Indication: IRRITABLE BOWEL SYNDROME
     Dosage: 2 BEFORE EVERY MEAL AND AS NEEDED FOR HEART BURN/INDIGESTION/NAUSEA
  47. VITAMIN B [Concomitant]
     Active Substance: VITAMIN B
     Indication: INVASIVE DUCTAL BREAST CARCINOMA
     Dosage: 1 DAILY WITH FOOD
  48. VITAMIN K2 + D3 [Concomitant]
     Indication: INVASIVE DUCTAL BREAST CARCINOMA
     Dosage: 4000-10000 IU/DAY, WOULD DEPEND ON D3 LAB RESULTS, CURRENTLY TAKING 4000
  49. MELATONIN [Concomitant]
     Active Substance: MELATONIN
     Indication: HER-2 POSITIVE BREAST CANCER

REACTIONS (1)
  - Adverse drug reaction [Recovering/Resolving]

NARRATIVE: CASE EVENT DATE: 2016
